FAERS Safety Report 25489103 (Version 1)
Quarter: 2025Q2

REPORT INFORMATION
  Report Type: Spontaneous
  Country: US (occurrence: US)
  Receive Date: 20250627
  Receipt Date: 20250627
  Transmission Date: 20250716
  Serious: No
  Sender: SANOFI AVENTIS
  Company Number: US-SANOFI-02555377

PATIENT
  Age: 86 Year
  Sex: Female
  Weight: 50 kg

DRUGS (2)
  1. TOUJEO MAX [Suspect]
     Active Substance: INSULIN GLARGINE
     Indication: Diabetes mellitus
     Dosage: 32 IU, QD
  2. HUMALOG [Concomitant]
     Active Substance: INSULIN LISPRO

REACTIONS (4)
  - Nausea [Unknown]
  - Tremor [Unknown]
  - Hypoglycaemia [Unknown]
  - Eye operation [Unknown]
